FAERS Safety Report 9447615 (Version 1)
Quarter: 2013Q3

REPORT INFORMATION
  Report Type: Spontaneous
  Country: FR (occurrence: FR)
  Receive Date: 20130808
  Receipt Date: 20130808
  Transmission Date: 20140515
  Serious: Yes (Other)
  Sender: FDA-Public Use
  Company Number: FR-JNJFOC-20130718708

PATIENT
  Sex: 0

DRUGS (4)
  1. DARUNAVIR [Suspect]
     Indication: HIV INFECTION
     Route: 048
  2. DARUNAVIR [Suspect]
     Indication: HIV INFECTION
     Route: 048
  3. RITONAVIR [Suspect]
     Indication: HIV INFECTION
     Route: 065
  4. RITONAVIR [Suspect]
     Indication: HIV INFECTION
     Route: 065

REACTIONS (1)
  - Medication crystals in urine [Unknown]
